FAERS Safety Report 19285628 (Version 4)
Quarter: 2021Q2

REPORT INFORMATION
  Report Type: Spontaneous
  Country: US (occurrence: US)
  Receive Date: 20210521
  Receipt Date: 20210630
  Transmission Date: 20210717
  Serious: No
  Sender: FDA-Public Use
  Company Number: US-SA-2021SA147181

PATIENT

DRUGS (1)
  1. LOVENOX [Suspect]
     Active Substance: ENOXAPARIN SODIUM
     Dosage: EXP 2022?12

REACTIONS (2)
  - Device deployment issue [Unknown]
  - Injury associated with device [Unknown]
